FAERS Safety Report 7581670-6 (Version None)
Quarter: 2011Q2

REPORT INFORMATION
  Report Type: 
  Country: None (occurrence: None)
  Receive Date: 20110629
  Receipt Date: 20110620
  Transmission Date: 20111010
  Serious: Yes (Hospitalization, Disabling, Other)
  Sender: FDA-Public Use
  Company Number: US-ASTRAZENECA-2011SE11830

PATIENT
  Age: 49 Year
  Sex: Male

DRUGS (6)
  1. FLOMAX [Concomitant]
     Indication: PROSTATOMEGALY
  2. PAMALOR [Concomitant]
  3. SEROQUEL [Suspect]
     Indication: AFFECTIVE DISORDER
     Dosage: 400 MG PLUS 100 MG DAILY
     Route: 048
     Dates: start: 20060101
  4. PRAVACHOL [Concomitant]
     Indication: HYPERCHOLESTEROLAEMIA
  5. NEXIUM [Suspect]
     Route: 048
     Dates: start: 20100801
  6. SEROQUEL [Suspect]
     Indication: BIPOLAR DISORDER
     Dosage: 400 MG PLUS 100 MG DAILY
     Route: 048
     Dates: start: 20060101

REACTIONS (10)
  - GUILLAIN-BARRE SYNDROME [None]
  - GENERAL PHYSICAL HEALTH DETERIORATION [None]
  - MENTAL IMPAIRMENT [None]
  - BACK PAIN [None]
  - DISABILITY [None]
  - WHEELCHAIR USER [None]
  - MALAISE [None]
  - CEREBROVASCULAR ACCIDENT [None]
  - PAIN IN EXTREMITY [None]
  - MEMORY IMPAIRMENT [None]
